FAERS Safety Report 11380130 (Version 1)
Quarter: 2015Q3

REPORT INFORMATION
  Report Type: Spontaneous
  Country: US (occurrence: US)
  Receive Date: 20150814
  Receipt Date: 20150814
  Transmission Date: 20151125
  Serious: No
  Sender: FDA-Public Use
  Company Number: 2006BI018642

PATIENT
  Age: 55 Year
  Sex: Female

DRUGS (3)
  1. AVONEX [Suspect]
     Active Substance: INTERFERON BETA-1A
     Indication: MULTIPLE SCLEROSIS
     Route: 030
     Dates: start: 200608, end: 2011
  2. AMPYRA [Concomitant]
     Active Substance: DALFAMPRIDINE
     Dates: start: 2011
  3. COPAXONE [Concomitant]
     Active Substance: GLATIRAMER ACETATE
     Dates: start: 2011

REACTIONS (4)
  - Pollakiuria [Recovered/Resolved]
  - Muscle spasms [Recovered/Resolved]
  - Influenza like illness [Recovered/Resolved]
  - Nausea [Recovered/Resolved]

NARRATIVE: CASE EVENT DATE: 2006
